FAERS Safety Report 21394645 (Version 2)
Quarter: 2022Q4

REPORT INFORMATION
  Report Type: Report from Study
  Country: US (occurrence: US)
  Receive Date: 20220930
  Receipt Date: 20221029
  Transmission Date: 20230113
  Serious: Yes (Hospitalization)
  Sender: FDA-Public Use
  Company Number: US-ABBVIE-4132464

PATIENT
  Sex: Female

DRUGS (6)
  1. HUMIRA [Suspect]
     Active Substance: ADALIMUMAB
     Indication: Psoriasis
     Route: 058
  2. HUMIRA [Suspect]
     Active Substance: ADALIMUMAB
     Route: 058
  3. LYRICA [Concomitant]
     Active Substance: PREGABALIN
     Indication: Product used for unknown indication
     Dosage: FORM STRENGTH: 300 MILLIGRAM
  4. PFIZER-BIONTECH COVID-19 VACCINE [Concomitant]
     Active Substance: TOZINAMERAN
     Indication: COVID-19 immunisation
     Dosage: 1ST DOSE (FREQUENCY- ONE IN ONCE)
     Route: 030
     Dates: start: 202102, end: 202102
  5. PFIZER-BIONTECH COVID-19 VACCINE [Concomitant]
     Active Substance: TOZINAMERAN
     Indication: COVID-19 immunisation
     Dosage: 2ND DOSE (FREQUENCY- ONE IN ONCE)
     Route: 030
     Dates: start: 20210520, end: 20210520
  6. PFIZER-BIONTECH COVID-19 VACCINE [Concomitant]
     Active Substance: TOZINAMERAN
     Indication: COVID-19 immunisation
     Dosage: 3RD DOSE (FREQUENCY- ONE IN ONCE)
     Route: 030
     Dates: start: 202108, end: 202108

REACTIONS (4)
  - Bell^s palsy [Unknown]
  - Fatigue [Unknown]
  - Mobility decreased [Unknown]
  - Poor quality sleep [Unknown]
